FAERS Safety Report 22079251 (Version 1)
Quarter: 2023Q1

REPORT INFORMATION
  Report Type: Report from Study
  Country: US (occurrence: US)
  Receive Date: 20230309
  Receipt Date: 20230309
  Transmission Date: 20230417
  Serious: Yes (Other)
  Sender: FDA-Public Use
  Company Number: US-TAKEDA-2022TUS038861

PATIENT
  Sex: Female
  Weight: 55.78 kg

DRUGS (19)
  1. TEDUGLUTIDE [Suspect]
     Active Substance: TEDUGLUTIDE
     Indication: Short-bowel syndrome
     Dosage: 0.27 MILLILITER, QD
     Route: 058
  2. TEDUGLUTIDE [Suspect]
     Active Substance: TEDUGLUTIDE
     Indication: Short-bowel syndrome
     Dosage: 0.27 MILLILITER, QD
     Route: 058
  3. TEDUGLUTIDE [Suspect]
     Active Substance: TEDUGLUTIDE
     Indication: Short-bowel syndrome
     Dosage: 0.27 MILLILITER, QD
     Route: 058
  4. TEDUGLUTIDE [Suspect]
     Active Substance: TEDUGLUTIDE
     Indication: Short-bowel syndrome
     Dosage: 0.27 MILLILITER, QD
     Route: 058
  5. MUPIROCIN [Concomitant]
     Active Substance: MUPIROCIN
  6. PENTASA [Concomitant]
     Active Substance: MESALAMINE
  7. ALLOPURINOL [Concomitant]
     Active Substance: ALLOPURINOL
  8. OMEPRAZOLE [Concomitant]
     Active Substance: OMEPRAZOLE
  9. VITAMIN C [Concomitant]
     Active Substance: ASCORBIC ACID
  10. ZINC [Concomitant]
     Active Substance: ZINC
  11. FERROUS GLUCONATE [Concomitant]
     Active Substance: FERROUS GLUCONATE
  12. ACYCLOVIR [Concomitant]
     Active Substance: ACYCLOVIR
  13. OPIUM TINCTURE [Concomitant]
     Active Substance: MORPHINE
  14. LOMOTIL [Concomitant]
     Active Substance: ATROPINE SULFATE\DIPHENOXYLATE HYDROCHLORIDE
  15. CYANOCOBALAMIN [Concomitant]
     Active Substance: CYANOCOBALAMIN
  16. ATROPINE\DIPHENOXYLATE [Concomitant]
     Active Substance: ATROPINE\DIPHENOXYLATE
  17. ROSUVASTATIN CALCIUM [Concomitant]
     Active Substance: ROSUVASTATIN CALCIUM
  18. FLUTICASONE [Concomitant]
     Active Substance: FLUTICASONE
  19. SUMATRIPTAN SUCCINATE [Concomitant]
     Active Substance: SUMATRIPTAN SUCCINATE

REACTIONS (8)
  - Hypokalaemia [Unknown]
  - Dehydration [Unknown]
  - Muscle atrophy [Unknown]
  - Chapped lips [Unknown]
  - Magnesium deficiency [Unknown]
  - Iron deficiency [Unknown]
  - Decreased appetite [Unknown]
  - Abdominal distension [Unknown]
